FAERS Safety Report 7568124-8 (Version None)
Quarter: 2011Q2

REPORT INFORMATION
  Report Type: 
  Country: None (occurrence: None)
  Receive Date: 20110616
  Receipt Date: 20110609
  Transmission Date: 20111010
  Serious: Yes (Other)
  Sender: FDA-Public Use
  Company Number: 2011SP026872

PATIENT
  Sex: Male

DRUGS (2)
  1. SUGAMMADEX SODIUM [Suspect]
     Indication: ANAESTHESIA REVERSAL
     Dates: start: 20110608
  2. VECURONIUM BROMIDE [Suspect]
     Indication: ANAESTHESIA

REACTIONS (1)
  - OXYGEN SATURATION DECREASED [None]
